FAERS Safety Report 11394700 (Version 1)
Quarter: 2015Q3

REPORT INFORMATION
  Report Type: Spontaneous
  Country: CA (occurrence: CA)
  Receive Date: 20150819
  Receipt Date: 20150819
  Transmission Date: 20151125
  Serious: Yes (Disabling)
  Sender: FDA-Public Use
  Company Number: CA-TEVA-587204ACC

PATIENT
  Age: 60 Year
  Sex: Female
  Weight: 52 kg

DRUGS (3)
  1. IMITREX [Concomitant]
     Active Substance: SUMATRIPTAN\SUMATRIPTAN SUCCINATE
     Route: 065
  2. METOCLOPRAMIDE. [Concomitant]
     Active Substance: METOCLOPRAMIDE
     Route: 065
  3. RATIO-TOPIRAMATE [Suspect]
     Active Substance: TOPIRAMATE
     Indication: MIGRAINE
     Dosage: 150 MILLIGRAM DAILY;
     Route: 048

REACTIONS (7)
  - Cough [Recovered/Resolved]
  - Lactose intolerance [Recovered/Resolved]
  - Sensory level abnormal [Recovered/Resolved]
  - Dysgeusia [Recovered/Resolved]
  - Photophobia [Recovered/Resolved]
  - Eczema [Recovered/Resolved]
  - Asthmatic crisis [Recovered/Resolved]
